FAERS Safety Report 23154291 (Version 1)
Quarter: 2023Q4

REPORT INFORMATION
  Report Type: Spontaneous
  Country: CN (occurrence: CN)
  Receive Date: 20231107
  Receipt Date: 20231107
  Transmission Date: 20240110
  Serious: Yes (Other)
  Sender: FDA-Public Use
  Company Number: CN-FreseniusKabi-FK202317622

PATIENT
  Age: 84 Year
  Sex: Male
  Weight: 64 kg

DRUGS (10)
  1. OMEGAVEN [Suspect]
     Active Substance: FISH OIL
     Indication: Adjuvant therapy
     Route: 041
     Dates: start: 20230915, end: 20230923
  2. AMINO ACIDS\DEXTROSE\ELECTROLYTES NOS\SOYBEAN OIL [Suspect]
     Active Substance: AMINO ACIDS\DEXTROSE\ELECTROLYTES NOS\SOYBEAN OIL
     Indication: Adjuvant therapy
     Route: 041
     Dates: start: 20230915, end: 20230924
  3. CEFMINOX SODIUM [Concomitant]
     Active Substance: CEFMINOX SODIUM
     Indication: Infection
  4. OMEPRAZOLE [Concomitant]
     Active Substance: OMEPRAZOLE
     Indication: Gastric pH decreased
  5. GLUTATHIONE [Concomitant]
     Active Substance: GLUTATHIONE
     Indication: Liver disorder
  6. aerosol inhalation of acetylcysteine [Concomitant]
     Indication: Product used for unknown indication
     Route: 055
  7. SUCROSE [Concomitant]
     Active Substance: SUCROSE
     Indication: Mineral supplementation
  8. ALANYL GLUTAMINE [Concomitant]
     Active Substance: ALANYL GLUTAMINE
     Indication: Gastrointestinal disorder
  9. fish oil fat emulsion [Concomitant]
     Indication: Inflammation
  10. KANGLAITE [Concomitant]
     Indication: Neoplasm

REACTIONS (2)
  - Drug-induced liver injury [Recovering/Resolving]
  - Liver function test abnormal [Recovering/Resolving]

NARRATIVE: CASE EVENT DATE: 20230920
